FAERS Safety Report 21738140 (Version 4)
Quarter: 2023Q4

REPORT INFORMATION
  Report Type: Spontaneous
  Country: CA (occurrence: CA)
  Receive Date: 20221216
  Receipt Date: 20231226
  Transmission Date: 20240110
  Serious: Yes (Congenital Anomaly)
  Sender: FDA-Public Use
  Company Number: CA-BRISTOL-MYERS SQUIBB COMPANY-2022-152521

PATIENT

DRUGS (299)
  1. ORENCIA [Suspect]
     Active Substance: ABATACEPT
     Indication: Product used for unknown indication
     Route: 064
  2. ORENCIA [Suspect]
     Active Substance: ABATACEPT
     Route: 064
  3. ORENCIA [Suspect]
     Active Substance: ABATACEPT
     Route: 064
  4. ORENCIA [Suspect]
     Active Substance: ABATACEPT
     Route: 064
  5. ORENCIA [Suspect]
     Active Substance: ABATACEPT
     Route: 064
  6. ORENCIA [Suspect]
     Active Substance: ABATACEPT
     Route: 064
  7. ORENCIA [Suspect]
     Active Substance: ABATACEPT
     Indication: Product used for unknown indication
     Route: 064
  8. ORENCIA [Suspect]
     Active Substance: ABATACEPT
     Route: 064
  9. ORENCIA [Suspect]
     Active Substance: ABATACEPT
     Route: 064
  10. ORENCIA [Suspect]
     Active Substance: ABATACEPT
     Indication: Product used for unknown indication
     Route: 064
  11. ORENCIA [Suspect]
     Active Substance: ABATACEPT
     Route: 064
  12. ORENCIA [Suspect]
     Active Substance: ABATACEPT
     Route: 064
  13. ORENCIA [Suspect]
     Active Substance: ABATACEPT
     Route: 064
  14. ORENCIA [Suspect]
     Active Substance: ABATACEPT
     Route: 064
  15. ACTEMRA [Concomitant]
     Active Substance: TOCILIZUMAB
     Indication: Product used for unknown indication
     Route: 064
  16. ACTEMRA [Concomitant]
     Active Substance: TOCILIZUMAB
     Route: 064
  17. ACTEMRA [Concomitant]
     Active Substance: TOCILIZUMAB
     Route: 064
  18. ACTEMRA [Concomitant]
     Active Substance: TOCILIZUMAB
     Route: 064
  19. ACTEMRA [Concomitant]
     Active Substance: TOCILIZUMAB
     Route: 064
  20. ACTEMRA [Concomitant]
     Active Substance: TOCILIZUMAB
     Route: 064
  21. ACTEMRA [Concomitant]
     Active Substance: TOCILIZUMAB
     Route: 064
  22. ACTEMRA [Concomitant]
     Active Substance: TOCILIZUMAB
     Route: 064
  23. ACTEMRA [Concomitant]
     Active Substance: TOCILIZUMAB
     Route: 064
  24. ACTEMRA [Concomitant]
     Active Substance: TOCILIZUMAB
     Route: 064
  25. ACTEMRA [Concomitant]
     Active Substance: TOCILIZUMAB
     Route: 064
  26. ACTEMRA [Concomitant]
     Active Substance: TOCILIZUMAB
     Route: 064
  27. ACTEMRA [Concomitant]
     Active Substance: TOCILIZUMAB
     Route: 064
  28. ACTEMRA [Concomitant]
     Active Substance: TOCILIZUMAB
     Route: 064
  29. ACTEMRA [Concomitant]
     Active Substance: TOCILIZUMAB
     Route: 064
  30. ACTEMRA [Concomitant]
     Active Substance: TOCILIZUMAB
     Route: 064
  31. ACTEMRA [Concomitant]
     Active Substance: TOCILIZUMAB
     Route: 064
  32. LEFLUNOMIDE [Concomitant]
     Active Substance: LEFLUNOMIDE
     Indication: Product used for unknown indication
     Route: 064
  33. LEFLUNOMIDE [Concomitant]
     Active Substance: LEFLUNOMIDE
     Route: 064
  34. LEFLUNOMIDE [Concomitant]
     Active Substance: LEFLUNOMIDE
     Route: 064
  35. LEFLUNOMIDE [Concomitant]
     Active Substance: LEFLUNOMIDE
     Route: 064
  36. LEFLUNOMIDE [Concomitant]
     Active Substance: LEFLUNOMIDE
     Route: 064
  37. LEFLUNOMIDE [Concomitant]
     Active Substance: LEFLUNOMIDE
     Route: 064
  38. PREDNISONE [Concomitant]
     Active Substance: PREDNISONE
     Indication: Product used for unknown indication
     Route: 064
  39. PREDNISONE [Concomitant]
     Active Substance: PREDNISONE
     Route: 064
  40. PREDNISONE [Concomitant]
     Active Substance: PREDNISONE
     Route: 064
  41. PREDNISONE [Concomitant]
     Active Substance: PREDNISONE
     Route: 064
  42. PREDNISONE [Concomitant]
     Active Substance: PREDNISONE
     Route: 064
  43. PREDNISONE [Concomitant]
     Active Substance: PREDNISONE
     Route: 064
  44. PREDNISONE [Concomitant]
     Active Substance: PREDNISONE
     Route: 064
  45. PREDNISONE [Concomitant]
     Active Substance: PREDNISONE
     Route: 064
  46. PREDNISONE [Concomitant]
     Active Substance: PREDNISONE
     Route: 064
  47. ARAVA [Concomitant]
     Active Substance: LEFLUNOMIDE
     Indication: Product used for unknown indication
     Route: 064
  48. ARAVA [Concomitant]
     Active Substance: LEFLUNOMIDE
     Route: 064
  49. ARAVA [Concomitant]
     Active Substance: LEFLUNOMIDE
     Route: 064
  50. ARAVA [Concomitant]
     Active Substance: LEFLUNOMIDE
     Route: 064
  51. ENBREL [Concomitant]
     Active Substance: ETANERCEPT
     Indication: Product used for unknown indication
     Dosage: THERAPY DURATION- 12 MONTHS
     Route: 064
  52. ENBREL [Concomitant]
     Active Substance: ETANERCEPT
     Route: 064
  53. ENBREL [Concomitant]
     Active Substance: ETANERCEPT
     Route: 064
  54. ENBREL [Concomitant]
     Active Substance: ETANERCEPT
     Route: 064
  55. ENBREL [Concomitant]
     Active Substance: ETANERCEPT
     Route: 064
  56. ENBREL [Concomitant]
     Active Substance: ETANERCEPT
     Route: 064
  57. ENBREL [Concomitant]
     Active Substance: ETANERCEPT
     Route: 064
  58. ENBREL [Concomitant]
     Active Substance: ETANERCEPT
     Route: 064
  59. ENBREL [Concomitant]
     Active Substance: ETANERCEPT
     Route: 064
  60. ENBREL [Concomitant]
     Active Substance: ETANERCEPT
     Route: 064
  61. ENBREL [Concomitant]
     Active Substance: ETANERCEPT
     Route: 064
  62. ENBREL [Concomitant]
     Active Substance: ETANERCEPT
     Route: 064
  63. ENBREL [Concomitant]
     Active Substance: ETANERCEPT
     Route: 064
  64. ENBREL [Concomitant]
     Active Substance: ETANERCEPT
     Route: 064
  65. FOLIC ACID [Concomitant]
     Active Substance: FOLIC ACID
     Indication: Product used for unknown indication
     Dosage: QWK
     Route: 064
  66. FOLIC ACID [Concomitant]
     Active Substance: FOLIC ACID
     Route: 064
  67. FOLIC ACID [Concomitant]
     Active Substance: FOLIC ACID
     Route: 064
  68. FOLIC ACID [Concomitant]
     Active Substance: FOLIC ACID
     Route: 064
  69. FOLIC ACID [Concomitant]
     Active Substance: FOLIC ACID
     Route: 064
  70. FOLIC ACID [Concomitant]
     Active Substance: FOLIC ACID
     Route: 064
  71. FOLIC ACID [Concomitant]
     Active Substance: FOLIC ACID
     Route: 064
  72. FOLIC ACID [Concomitant]
     Active Substance: FOLIC ACID
     Route: 064
  73. HUMIRA [Concomitant]
     Active Substance: ADALIMUMAB
     Indication: Product used for unknown indication
     Dosage: SOLUTION SUBCUTANEOUS
     Route: 064
  74. HUMIRA [Concomitant]
     Active Substance: ADALIMUMAB
     Route: 064
  75. HUMIRA [Concomitant]
     Active Substance: ADALIMUMAB
     Route: 064
  76. HUMIRA [Concomitant]
     Active Substance: ADALIMUMAB
     Route: 064
  77. HUMIRA [Concomitant]
     Active Substance: ADALIMUMAB
     Route: 064
  78. HUMIRA [Concomitant]
     Active Substance: ADALIMUMAB
     Route: 064
  79. HUMIRA [Concomitant]
     Active Substance: ADALIMUMAB
     Route: 064
  80. HYDROXYCHLOROQUINE SULFATE [Concomitant]
     Active Substance: HYDROXYCHLOROQUINE SULFATE
     Indication: Product used for unknown indication
     Route: 064
  81. HYDROXYCHLOROQUINE SULFATE [Concomitant]
     Active Substance: HYDROXYCHLOROQUINE SULFATE
     Route: 064
  82. HYDROXYCHLOROQUINE SULFATE [Concomitant]
     Active Substance: HYDROXYCHLOROQUINE SULFATE
     Route: 064
  83. HYDROXYCHLOROQUINE SULFATE [Concomitant]
     Active Substance: HYDROXYCHLOROQUINE SULFATE
     Route: 064
  84. HYDROXYCHLOROQUINE SULFATE [Concomitant]
     Active Substance: HYDROXYCHLOROQUINE SULFATE
     Route: 064
  85. METHOTREXATE [Concomitant]
     Active Substance: METHOTREXATE
     Indication: Product used for unknown indication
     Route: 064
  86. METHOTREXATE [Concomitant]
     Active Substance: METHOTREXATE
     Route: 064
  87. METHOTREXATE [Concomitant]
     Active Substance: METHOTREXATE
     Route: 064
  88. METHOTREXATE [Concomitant]
     Active Substance: METHOTREXATE
     Route: 064
  89. METHOTREXATE [Concomitant]
     Active Substance: METHOTREXATE
     Route: 064
  90. METHOTREXATE [Concomitant]
     Active Substance: METHOTREXATE
     Route: 064
  91. METHOTREXATE [Concomitant]
     Active Substance: METHOTREXATE
     Route: 064
  92. METHOTREXATE [Concomitant]
     Active Substance: METHOTREXATE
     Route: 064
  93. METHOTREXATE [Concomitant]
     Active Substance: METHOTREXATE
     Route: 064
  94. METHOTREXATE [Concomitant]
     Active Substance: METHOTREXATE
     Route: 064
  95. METHOTREXATE [Concomitant]
     Active Substance: METHOTREXATE
     Route: 064
  96. METHOTREXATE [Concomitant]
     Active Substance: METHOTREXATE
     Route: 064
  97. METHOTREXATE [Concomitant]
     Active Substance: METHOTREXATE
     Route: 064
  98. METHOTREXATE [Concomitant]
     Active Substance: METHOTREXATE
     Route: 064
  99. METHOTREXATE [Concomitant]
     Active Substance: METHOTREXATE
     Route: 064
  100. METHOTREXATE [Concomitant]
     Active Substance: METHOTREXATE
     Route: 064
  101. REMICADE [Concomitant]
     Active Substance: INFLIXIMAB
     Indication: Product used for unknown indication
     Dosage: POWDER FOR SOLUTION INTRAVENOUS
     Route: 064
  102. REMICADE [Concomitant]
     Active Substance: INFLIXIMAB
     Route: 064
  103. REMICADE [Concomitant]
     Active Substance: INFLIXIMAB
     Route: 064
  104. REMICADE [Concomitant]
     Active Substance: INFLIXIMAB
     Dosage: POWDER FOR SOLUTION FOR INTRAVENOUS
     Route: 064
  105. REMICADE [Concomitant]
     Active Substance: INFLIXIMAB
     Route: 064
  106. REMICADE [Concomitant]
     Active Substance: INFLIXIMAB
     Dosage: POWDER FOR SOLUTION FOR INJECTION/ INFUSION
     Route: 064
  107. REMICADE [Concomitant]
     Active Substance: INFLIXIMAB
     Dosage: POWDER FOR SOLUTION FOR INJECTION/ INFUSION
     Route: 064
  108. REMICADE [Concomitant]
     Active Substance: INFLIXIMAB
     Dosage: POWDER FOR SOLUTION FOR INJECTION/ INFUSION
     Route: 064
  109. RITUXIMAB [Concomitant]
     Active Substance: RITUXIMAB
     Indication: Product used for unknown indication
     Dosage: 5 MONTHS DURATION
     Route: 064
  110. RITUXIMAB [Concomitant]
     Active Substance: RITUXIMAB
     Route: 064
  111. RITUXIMAB [Concomitant]
     Active Substance: RITUXIMAB
     Route: 064
  112. RITUXIMAB [Concomitant]
     Active Substance: RITUXIMAB
     Route: 064
  113. RITUXIMAB [Concomitant]
     Active Substance: RITUXIMAB
     Route: 064
  114. RITUXIMAB [Concomitant]
     Active Substance: RITUXIMAB
     Route: 064
  115. RITUXIMAB [Concomitant]
     Active Substance: RITUXIMAB
     Route: 064
  116. RITUXIMAB [Concomitant]
     Active Substance: RITUXIMAB
     Route: 064
  117. RITUXIMAB [Concomitant]
     Active Substance: RITUXIMAB
     Route: 064
  118. RITUXIMAB [Concomitant]
     Active Substance: RITUXIMAB
     Route: 064
  119. RITUXIMAB [Concomitant]
     Active Substance: RITUXIMAB
     Route: 064
  120. RITUXIMAB [Concomitant]
     Active Substance: RITUXIMAB
     Route: 064
  121. RITUXIMAB [Concomitant]
     Active Substance: RITUXIMAB
     Route: 064
  122. RITUXIMAB [Concomitant]
     Active Substance: RITUXIMAB
     Route: 064
  123. RITUXIMAB [Concomitant]
     Active Substance: RITUXIMAB
     Route: 064
  124. RITUXIMAB [Concomitant]
     Active Substance: RITUXIMAB
     Route: 064
  125. SIMPONI [Concomitant]
     Active Substance: GOLIMUMAB
     Indication: Product used for unknown indication
     Dosage: SOLUTIONSUBCUTANEOUS
     Route: 064
  126. SIMPONI [Concomitant]
     Active Substance: GOLIMUMAB
     Route: 064
  127. SIMPONI [Concomitant]
     Active Substance: GOLIMUMAB
     Dosage: SOLUTION SUBCUTANEOUS
     Route: 064
  128. SIMPONI [Concomitant]
     Active Substance: GOLIMUMAB
     Route: 064
  129. SIMPONI [Concomitant]
     Active Substance: GOLIMUMAB
     Route: 064
  130. SIMPONI [Concomitant]
     Active Substance: GOLIMUMAB
     Route: 064
  131. SULFASALAZINE [Concomitant]
     Active Substance: SULFASALAZINE
     Indication: Product used for unknown indication
     Route: 064
  132. SULFASALAZINE [Concomitant]
     Active Substance: SULFASALAZINE
     Route: 064
  133. SULFASALAZINE [Concomitant]
     Active Substance: SULFASALAZINE
     Route: 064
  134. SULFASALAZINE [Concomitant]
     Active Substance: SULFASALAZINE
     Route: 064
  135. SULFASALAZINE [Concomitant]
     Active Substance: SULFASALAZINE
     Route: 064
  136. SULFASALAZINE [Concomitant]
     Active Substance: SULFASALAZINE
     Route: 064
  137. SULFASALAZINE [Concomitant]
     Active Substance: SULFASALAZINE
     Route: 064
  138. SULFASALAZINE [Concomitant]
     Active Substance: SULFASALAZINE
     Route: 064
  139. SULFASALAZINE [Concomitant]
     Active Substance: SULFASALAZINE
     Route: 064
  140. SULFASALAZINE [Concomitant]
     Active Substance: SULFASALAZINE
     Route: 064
  141. SULFASALAZINE [Concomitant]
     Active Substance: SULFASALAZINE
     Route: 064
  142. SULFASALAZINE [Concomitant]
     Active Substance: SULFASALAZINE
     Route: 064
  143. SULFASALAZINE [Concomitant]
     Active Substance: SULFASALAZINE
     Route: 064
  144. GOLD [Concomitant]
     Active Substance: GOLD
     Indication: Product used for unknown indication
     Route: 064
  145. LEFLUNOMIDE [Concomitant]
     Active Substance: LEFLUNOMIDE
     Indication: Product used for unknown indication
     Route: 064
  146. LEFLUNOMIDE [Concomitant]
     Active Substance: LEFLUNOMIDE
     Route: 064
  147. LEFLUNOMIDE [Concomitant]
     Active Substance: LEFLUNOMIDE
     Route: 064
  148. LEFLUNOMIDE [Concomitant]
     Active Substance: LEFLUNOMIDE
     Route: 064
  149. LEFLUNOMIDE [Concomitant]
     Active Substance: LEFLUNOMIDE
     Route: 064
  150. LEFLUNOMIDE [Concomitant]
     Active Substance: LEFLUNOMIDE
     Route: 064
  151. LEFLUNOMIDE [Concomitant]
     Active Substance: LEFLUNOMIDE
     Route: 064
  152. LEFLUNOMIDE [Concomitant]
     Active Substance: LEFLUNOMIDE
     Route: 064
  153. PREDNISONE [Concomitant]
     Active Substance: PREDNISONE
     Indication: Product used for unknown indication
     Route: 064
  154. PREDNISONE [Concomitant]
     Active Substance: PREDNISONE
     Route: 064
  155. PREDNISONE [Concomitant]
     Active Substance: PREDNISONE
     Route: 064
  156. PREDNISONE [Concomitant]
     Active Substance: PREDNISONE
     Route: 064
  157. PREDNISONE [Concomitant]
     Active Substance: PREDNISONE
     Route: 064
  158. PREDNISONE [Concomitant]
     Active Substance: PREDNISONE
     Route: 064
  159. PREDNISONE [Concomitant]
     Active Substance: PREDNISONE
     Route: 064
  160. PREDNISONE [Concomitant]
     Active Substance: PREDNISONE
     Route: 064
  161. PREDNISONE [Concomitant]
     Active Substance: PREDNISONE
     Route: 064
  162. PREDNISONE [Concomitant]
     Active Substance: PREDNISONE
     Route: 064
  163. CIMZIA [Concomitant]
     Active Substance: CERTOLIZUMAB PEGOL
     Indication: Product used for unknown indication
     Route: 064
  164. CIMZIA [Concomitant]
     Active Substance: CERTOLIZUMAB PEGOL
     Route: 064
  165. CIMZIA [Concomitant]
     Active Substance: CERTOLIZUMAB PEGOL
     Route: 064
  166. CIMZIA [Concomitant]
     Active Substance: CERTOLIZUMAB PEGOL
     Route: 064
  167. CIMZIA [Concomitant]
     Active Substance: CERTOLIZUMAB PEGOL
     Route: 064
  168. CIMZIA [Concomitant]
     Active Substance: CERTOLIZUMAB PEGOL
     Route: 064
  169. XELJANZ [Concomitant]
     Active Substance: TOFACITINIB CITRATE
     Indication: Product used for unknown indication
     Route: 064
  170. XELJANZ [Concomitant]
     Active Substance: TOFACITINIB CITRATE
     Route: 064
  171. XELJANZ [Concomitant]
     Active Substance: TOFACITINIB CITRATE
     Route: 064
  172. XELJANZ [Concomitant]
     Active Substance: TOFACITINIB CITRATE
     Route: 064
  173. XELJANZ [Concomitant]
     Active Substance: TOFACITINIB CITRATE
     Route: 064
  174. XELJANZ [Concomitant]
     Active Substance: TOFACITINIB CITRATE
     Route: 064
  175. XELJANZ [Concomitant]
     Active Substance: TOFACITINIB CITRATE
     Route: 064
  176. XELJANZ [Concomitant]
     Active Substance: TOFACITINIB CITRATE
     Route: 064
  177. XELJANZ [Concomitant]
     Active Substance: TOFACITINIB CITRATE
     Route: 064
  178. XELJANZ [Concomitant]
     Active Substance: TOFACITINIB CITRATE
     Route: 064
  179. TOFACITINIB CITRATE [Concomitant]
     Active Substance: TOFACITINIB CITRATE
     Indication: Product used for unknown indication
     Route: 064
  180. TOFACITINIB CITRATE [Concomitant]
     Active Substance: TOFACITINIB CITRATE
     Route: 064
  181. ACETAMINOPHEN [Concomitant]
     Active Substance: ACETAMINOPHEN
     Indication: Product used for unknown indication
     Route: 064
  182. ACETAMINOPHEN [Concomitant]
     Active Substance: ACETAMINOPHEN
     Route: 064
  183. ACETAMINOPHEN [Concomitant]
     Active Substance: ACETAMINOPHEN
     Route: 064
  184. ACETAMINOPHEN [Concomitant]
     Active Substance: ACETAMINOPHEN
     Route: 064
  185. ACETAMINOPHEN [Concomitant]
     Active Substance: ACETAMINOPHEN
     Route: 064
  186. ACETAMINOPHEN [Concomitant]
     Active Substance: ACETAMINOPHEN
     Route: 064
  187. ACETAMINOPHEN [Concomitant]
     Active Substance: ACETAMINOPHEN
     Route: 064
  188. ACETAMINOPHEN [Concomitant]
     Active Substance: ACETAMINOPHEN
     Route: 064
  189. ACETAMINOPHEN [Concomitant]
     Active Substance: ACETAMINOPHEN
     Route: 064
  190. ACETAMINOPHEN [Concomitant]
     Active Substance: ACETAMINOPHEN
     Route: 064
  191. ACETAMINOPHEN [Concomitant]
     Active Substance: ACETAMINOPHEN
     Route: 064
  192. ACETAMINOPHEN [Concomitant]
     Active Substance: ACETAMINOPHEN
     Route: 064
  193. ACETAMINOPHEN [Concomitant]
     Active Substance: ACETAMINOPHEN
     Route: 064
  194. ACETAMINOPHEN [Concomitant]
     Active Substance: ACETAMINOPHEN
     Route: 064
  195. ACETAMINOPHEN [Concomitant]
     Active Substance: ACETAMINOPHEN
     Route: 064
  196. ACETAMINOPHEN [Concomitant]
     Active Substance: ACETAMINOPHEN
     Route: 064
  197. ACETAMINOPHEN [Concomitant]
     Active Substance: ACETAMINOPHEN
     Indication: Product used for unknown indication
     Route: 064
  198. ALENDRONATE SODIUM [Concomitant]
     Active Substance: ALENDRONATE SODIUM
     Indication: Product used for unknown indication
     Route: 064
  199. ALENDRONATE SODIUM [Concomitant]
     Active Substance: ALENDRONATE SODIUM
     Route: 064
  200. APREMILAST [Concomitant]
     Active Substance: APREMILAST
     Indication: Product used for unknown indication
     Route: 064
  201. APREMILAST [Concomitant]
     Active Substance: APREMILAST
     Route: 064
  202. AZATHIOPRINE SODIUM [Concomitant]
     Active Substance: AZATHIOPRINE SODIUM
     Indication: Product used for unknown indication
     Route: 064
  203. CERTOLIZUMAB PEGOL [Concomitant]
     Active Substance: CERTOLIZUMAB PEGOL
     Indication: Product used for unknown indication
     Dosage: CYCLICAL
     Route: 064
  204. CERTOLIZUMAB PEGOL [Concomitant]
     Active Substance: CERTOLIZUMAB PEGOL
     Route: 064
  205. CERTOLIZUMAB PEGOL [Concomitant]
     Active Substance: CERTOLIZUMAB PEGOL
     Route: 064
  206. CETIRIZINE HYDROCHLORIDE [Concomitant]
     Active Substance: CETIRIZINE HYDROCHLORIDE
     Indication: Product used for unknown indication
     Route: 064
  207. CETIRIZINE HYDROCHLORIDE [Concomitant]
     Active Substance: CETIRIZINE HYDROCHLORIDE
     Route: 064
  208. CETIRIZINE HYDROCHLORIDE [Concomitant]
     Active Substance: CETIRIZINE HYDROCHLORIDE
     Route: 064
  209. COSENTYX [Concomitant]
     Active Substance: SECUKINUMAB
     Indication: Product used for unknown indication
     Route: 064
  210. CORTISONE ACETATE [Concomitant]
     Active Substance: CORTISONE ACETATE
     Indication: Product used for unknown indication
     Route: 064
  211. CORTISONE ACETATE [Concomitant]
     Active Substance: CORTISONE ACETATE
     Route: 064
  212. CORTISONE ACETATE [Concomitant]
     Active Substance: CORTISONE ACETATE
     Route: 064
  213. CORTISONE ACETATE [Concomitant]
     Active Substance: CORTISONE ACETATE
     Route: 064
  214. DESOXIMETASONE [Concomitant]
     Active Substance: DESOXIMETASONE
     Indication: Product used for unknown indication
     Route: 064
  215. DESOXIMETASONE [Concomitant]
     Active Substance: DESOXIMETASONE
     Route: 064
  216. DESOXIMETASONE [Concomitant]
     Active Substance: DESOXIMETASONE
     Route: 064
  217. DESOXIMETASONE [Concomitant]
     Active Substance: DESOXIMETASONE
     Route: 064
  218. DESOXIMETASONE [Concomitant]
     Active Substance: DESOXIMETASONE
     Route: 064
  219. DESOXIMETASONE [Concomitant]
     Active Substance: DESOXIMETASONE
     Route: 064
  220. DESOXIMETASONE [Concomitant]
     Active Substance: DESOXIMETASONE
     Route: 064
  221. DICLOFENAC SODIUM [Concomitant]
     Active Substance: DICLOFENAC\DICLOFENAC SODIUM
     Indication: Product used for unknown indication
     Route: 064
  222. FLUMETHASONE PIVALATE [Concomitant]
     Active Substance: FLUMETHASONE PIVALATE
     Indication: Product used for unknown indication
     Route: 064
  223. ERELZI [Concomitant]
     Active Substance: ETANERCEPT-SZZS
     Indication: Product used for unknown indication
     Route: 064
  224. ERELZI [Concomitant]
     Active Substance: ETANERCEPT-SZZS
     Route: 064
  225. FOSAMAX [Concomitant]
     Active Substance: ALENDRONATE SODIUM
     Indication: Product used for unknown indication
     Route: 064
  226. FOSAMAX [Concomitant]
     Active Substance: ALENDRONATE SODIUM
     Route: 064
  227. FOSAMAX [Concomitant]
     Active Substance: ALENDRONATE SODIUM
     Route: 064
  228. GOLD SODIUM THIOMALATE [Concomitant]
     Active Substance: GOLD SODIUM THIOMALATE
     Indication: Product used for unknown indication
     Route: 064
  229. HYDROCORTISONE ACETATE [Concomitant]
     Active Substance: HYDROCORTISONE ACETATE
     Indication: Product used for unknown indication
     Dosage: UNK
     Route: 064
  230. INFLIXIMAB [Concomitant]
     Active Substance: INFLIXIMAB
     Indication: Product used for unknown indication
     Route: 064
  231. INFLIXIMAB [Concomitant]
     Active Substance: INFLIXIMAB
     Route: 064
  232. KEVZARA [Concomitant]
     Active Substance: SARILUMAB
     Indication: Product used for unknown indication
     Route: 064
  233. METHYLPREDNISOLONE [Concomitant]
     Active Substance: METHYLPREDNISOLONE
     Indication: Product used for unknown indication
     Route: 064
  234. METHYLPREDNISOLONE [Concomitant]
     Active Substance: METHYLPREDNISOLONE
     Route: 064
  235. MINOCYCLINE HYDROCHLORIDE [Concomitant]
     Active Substance: MINOCYCLINE HYDROCHLORIDE
     Indication: Product used for unknown indication
     Route: 064
  236. TETRACYCLINE HYDROCHLORIDE [Concomitant]
     Active Substance: TETRACYCLINE HYDROCHLORIDE
     Indication: Product used for unknown indication
     Route: 064
  237. MYOCHRYSINE [Concomitant]
     Active Substance: GOLD SODIUM THIOMALATE
     Indication: Product used for unknown indication
     Dosage: SOLUTION INTRAMUSCULAR
     Route: 064
  238. NAPROXEN [Concomitant]
     Active Substance: NAPROXEN
     Indication: Product used for unknown indication
     Route: 064
  239. NAPROXEN [Concomitant]
     Active Substance: NAPROXEN
     Route: 064
  240. PSEUDOEPHEDRINE HYDROCHLORIDE [Concomitant]
     Active Substance: PSEUDOEPHEDRINE HYDROCHLORIDE
     Indication: Product used for unknown indication
     Route: 064
  241. PSEUDOEPHEDRINE HYDROCHLORIDE [Concomitant]
     Active Substance: PSEUDOEPHEDRINE HYDROCHLORIDE
     Route: 064
  242. PSEUDOEPHEDRINE HYDROCHLORIDE [Concomitant]
     Active Substance: PSEUDOEPHEDRINE HYDROCHLORIDE
     Route: 064
  243. PSEUDOEPHEDRINE HYDROCHLORIDE [Concomitant]
     Active Substance: PSEUDOEPHEDRINE HYDROCHLORIDE
     Route: 064
  244. PSEUDOEPHEDRINE HYDROCHLORIDE [Concomitant]
     Active Substance: PSEUDOEPHEDRINE HYDROCHLORIDE
     Route: 064
  245. PHTHALYLSULFATHIAZOLE [Concomitant]
     Active Substance: PHTHALYLSULFATHIAZOLE
     Indication: Product used for unknown indication
     Route: 064
  246. PHTHALYLSULFATHIAZOLE [Concomitant]
     Active Substance: PHTHALYLSULFATHIAZOLE
     Route: 064
  247. PHTHALYLSULFATHIAZOLE [Concomitant]
     Active Substance: PHTHALYLSULFATHIAZOLE
     Route: 064
  248. PHTHALYLSULFATHIAZOLE [Concomitant]
     Active Substance: PHTHALYLSULFATHIAZOLE
     Route: 064
  249. PHTHALYLSULFATHIAZOLE [Concomitant]
     Active Substance: PHTHALYLSULFATHIAZOLE
     Route: 064
  250. PHTHALYLSULFATHIAZOLE [Concomitant]
     Active Substance: PHTHALYLSULFATHIAZOLE
     Route: 064
  251. PHTHALYLSULFATHIAZOLE [Concomitant]
     Active Substance: PHTHALYLSULFATHIAZOLE
     Route: 064
  252. SULFASALAZINE [Concomitant]
     Active Substance: SULFASALAZINE
     Indication: Product used for unknown indication
     Route: 064
  253. SULFASALAZINE [Concomitant]
     Active Substance: SULFASALAZINE
     Route: 064
  254. SIRUKUMAB [Concomitant]
     Active Substance: SIRUKUMAB
     Indication: Product used for unknown indication
     Route: 064
  255. GOLD SODIUM THIOMALATE [Concomitant]
     Active Substance: GOLD SODIUM THIOMALATE
     Indication: Product used for unknown indication
     Route: 064
  256. GOLD SODIUM THIOMALATE [Concomitant]
     Active Substance: GOLD SODIUM THIOMALATE
     Route: 064
  257. GOLD SODIUM THIOMALATE [Concomitant]
     Active Substance: GOLD SODIUM THIOMALATE
     Route: 064
  258. STELARA [Concomitant]
     Active Substance: USTEKINUMAB
     Indication: Product used for unknown indication
     Dosage: SOLUTIONSUBCUTANEOUS
     Route: 064
  259. TOCILIZUMAB [Concomitant]
     Active Substance: TOCILIZUMAB
     Indication: Product used for unknown indication
     Route: 064
  260. TOCILIZUMAB [Concomitant]
     Active Substance: TOCILIZUMAB
     Route: 064
  261. TOCILIZUMAB [Concomitant]
     Active Substance: TOCILIZUMAB
     Route: 064
  262. TOCILIZUMAB [Concomitant]
     Active Substance: TOCILIZUMAB
     Route: 064
  263. TOCILIZUMAB [Concomitant]
     Active Substance: TOCILIZUMAB
     Route: 064
  264. HYDROCORTISONE [Concomitant]
     Active Substance: HYDROCORTISONE
     Indication: Product used for unknown indication
     Route: 064
  265. HYDROXYCHLOROQUINE [Concomitant]
     Active Substance: HYDROXYCHLOROQUINE
     Indication: Product used for unknown indication
     Route: 064
  266. HYDROXYCHLOROQUINE [Concomitant]
     Active Substance: HYDROXYCHLOROQUINE
     Route: 064
  267. HYDROXYCHLOROQUINE [Concomitant]
     Active Substance: HYDROXYCHLOROQUINE
     Dosage: 4 MONTHS DURATION
     Route: 064
  268. HYDROXYCHLOROQUINE [Concomitant]
     Active Substance: HYDROXYCHLOROQUINE
     Route: 064
  269. HYDROXYCHLOROQUINE [Concomitant]
     Active Substance: HYDROXYCHLOROQUINE
     Route: 064
  270. HYDROXYCHLOROQUINE [Concomitant]
     Active Substance: HYDROXYCHLOROQUINE
     Route: 064
  271. HYDROXYCHLOROQUINE [Concomitant]
     Active Substance: HYDROXYCHLOROQUINE
     Dosage: 4 MONTHS DURATION
     Route: 064
  272. HYDROXYCHLOROQUINE [Concomitant]
     Active Substance: HYDROXYCHLOROQUINE
     Route: 064
  273. HYDROXYCHLOROQUINE [Concomitant]
     Active Substance: HYDROXYCHLOROQUINE
     Route: 064
  274. HYDROXYCHLOROQUINE [Concomitant]
     Active Substance: HYDROXYCHLOROQUINE
     Route: 064
  275. HYDROXYCHLOROQUINE [Concomitant]
     Active Substance: HYDROXYCHLOROQUINE
     Route: 064
  276. HYDROXYCHLOROQUINE [Concomitant]
     Active Substance: HYDROXYCHLOROQUINE
     Route: 064
  277. HYDROXYCHLOROQUINE [Concomitant]
     Active Substance: HYDROXYCHLOROQUINE
     Route: 064
  278. TRAMADOL HYDROCHLORIDE [Concomitant]
     Active Substance: TRAMADOL HYDROCHLORIDE
     Indication: Product used for unknown indication
     Dosage: UNK
     Route: 064
  279. ADALIMUMAB [Concomitant]
     Active Substance: ADALIMUMAB\ISOPROPYL ALCOHOL
     Indication: Product used for unknown indication
     Dosage: SOLUTION SUBCUTANEOUS
     Route: 064
  280. ADALIMUMAB [Concomitant]
     Active Substance: ADALIMUMAB\ISOPROPYL ALCOHOL
     Route: 064
  281. ADALIMUMAB [Concomitant]
     Active Substance: ADALIMUMAB\ISOPROPYL ALCOHOL
     Route: 064
  282. AIMOVIG [Concomitant]
     Active Substance: ERENUMAB-AOOE
     Indication: Product used for unknown indication
     Route: 064
  283. AIMOVIG [Concomitant]
     Active Substance: ERENUMAB-AOOE
     Route: 064
  284. CORTISONE (HYDROCORTISONE) [Concomitant]
     Active Substance: HYDROCORTISONE
     Indication: Product used for unknown indication
     Route: 064
  285. CORTISONE (HYDROCORTISONE) [Concomitant]
     Active Substance: HYDROCORTISONE
     Route: 064
  286. MINOCYCLINE [Concomitant]
     Active Substance: MINOCYCLINE HYDROCHLORIDE
     Indication: Product used for unknown indication
     Route: 064
  287. MINOCYCLINE [Concomitant]
     Active Substance: MINOCYCLINE HYDROCHLORIDE
     Route: 064
  288. TOFACITINIB [Concomitant]
     Active Substance: TOFACITINIB
     Indication: Product used for unknown indication
     Route: 064
  289. TOFACITINIB [Concomitant]
     Active Substance: TOFACITINIB
     Route: 064
  290. METHYLPREDNISOLONE SODIUM SUCCINATE [Concomitant]
     Active Substance: METHYLPREDNISOLONE SODIUM SUCCINATE
     Indication: Product used for unknown indication
     Route: 064
  291. DESOGESTREL\ETHINYL ESTRADIOL [Concomitant]
     Active Substance: DESOGESTREL\ETHINYL ESTRADIOL
     Indication: Product used for unknown indication
     Route: 064
  292. DESOGESTREL\ETHINYL ESTRADIOL [Concomitant]
     Active Substance: DESOGESTREL\ETHINYL ESTRADIOL
     Route: 064
  293. OTEZLA [Concomitant]
     Active Substance: APREMILAST
     Indication: Product used for unknown indication
     Route: 064
  294. AZATHIOPRINE [Concomitant]
     Active Substance: AZATHIOPRINE
     Indication: Product used for unknown indication
     Route: 064
  295. CETIRIZINE [Concomitant]
     Active Substance: CETIRIZINE HYDROCHLORIDE
     Indication: Product used for unknown indication
     Route: 064
  296. PERIOGARD [Concomitant]
     Active Substance: CHLORHEXIDINE GLUCONATE
     Indication: Product used for unknown indication
     Route: 064
  297. PSEUDOEPHEDRINE [Concomitant]
     Active Substance: PSEUDOEPHEDRINE
     Indication: Product used for unknown indication
     Route: 064
  298. SULFAMETHOXAZOLE AND TRIMETHOPRIM [Concomitant]
     Active Substance: SULFAMETHOXAZOLE\TRIMETHOPRIM
     Indication: Product used for unknown indication
     Route: 064
  299. TRAMADOL HYDROCHLORIDE [Concomitant]
     Active Substance: TRAMADOL HYDROCHLORIDE
     Indication: Product used for unknown indication
     Route: 064

REACTIONS (2)
  - Foetal exposure during pregnancy [Unknown]
  - Congenital anomaly [Unknown]
